FAERS Safety Report 15840607 (Version 4)
Quarter: 2019Q1

REPORT INFORMATION
  Report Type: Report from Study
  Country: US (occurrence: US)
  Receive Date: 20190118
  Receipt Date: 20190211
  Transmission Date: 20190417
  Serious: Yes (Death, Hospitalization)
  Sender: FDA-Public Use
  Company Number: US-ROCHE-2244265

PATIENT
  Age: 65 Year
  Sex: Female
  Weight: 45.4 kg

DRUGS (3)
  1. BEVACIZUMAB. [Suspect]
     Active Substance: BEVACIZUMAB
     Indication: OVARIAN CANCER
     Dosage: ON 24/DEC/2018, SHE RECEIVED HER LAST DOSS OF BEVACIZUMAB PRIOR TO THE SAE (TOTAL DOSE ADMINISTERED
     Route: 042
     Dates: start: 20181029
  2. LIPOSOMAL DOXORUBICIN [Suspect]
     Active Substance: DOXORUBICIN HYDROCHLORIDE
     Indication: OVARIAN CANCER
     Dosage: ON 24/DEC/2018, SHE RECEIVED HER LAST DOSS OF LIPOSOMAL DOXORUBICIN PRIOR TO THE SAE (TOTAL DOSE ADM
     Route: 042
     Dates: start: 20181029
  3. ATEZOLIZUMAB. [Suspect]
     Active Substance: ATEZOLIZUMAB
     Indication: OVARIAN CANCER
     Dosage: ON 24/DEC/2018, SHE RECEIVED HER LAST DOSS OF ATEZOLIZUMAB PRIOR TO THE SAE (TOTAL DOSE ADMINISTERED
     Route: 042
     Dates: start: 20181029

REACTIONS (3)
  - Septic shock [Fatal]
  - Small intestinal perforation [Fatal]
  - Small intestinal obstruction [Fatal]

NARRATIVE: CASE EVENT DATE: 20181224
